FAERS Safety Report 24832725 (Version 1)
Quarter: 2025Q1

REPORT INFORMATION
  Report Type: Spontaneous
  Country: FI (occurrence: FI)
  Receive Date: 20250110
  Receipt Date: 20250110
  Transmission Date: 20250408
  Serious: Yes (Death, Other)
  Sender: GILEAD
  Company Number: FI-GILEAD-2025-0699676

PATIENT
  Age: 72 Year
  Sex: Male

DRUGS (1)
  1. TECARTUS [Suspect]
     Active Substance: BREXUCABTAGENE AUTOLEUCEL
     Indication: Product used for unknown indication
     Route: 042
     Dates: start: 20231009, end: 20231009

REACTIONS (1)
  - Death [Fatal]

NARRATIVE: CASE EVENT DATE: 20241027
